FAERS Safety Report 18563961 (Version 1)
Quarter: 2020Q4

REPORT INFORMATION
  Report Type: Spontaneous
  Country: US (occurrence: US)
  Receive Date: 20201201
  Receipt Date: 20201201
  Transmission Date: 20210114
  Serious: No
  Sender: FDA-Public Use
  Company Number: US-LUPIN PHARMACEUTICALS INC.-2020-06008

PATIENT
  Age: 47 Year
  Sex: Female

DRUGS (5)
  1. FLUTICASONE. [Suspect]
     Active Substance: FLUTICASONE
     Indication: RHINITIS
     Dosage: UNK
  2. BUDESONIDE;FORMOTEROL [Suspect]
     Active Substance: BUDESONIDE\FORMOTEROL
     Indication: ASTHMA
  3. HYDROCORTISONE. [Suspect]
     Active Substance: HYDROCORTISONE
     Indication: DERMATITIS CONTACT
     Dosage: UNK
     Route: 061
  4. BUDESONIDE;FORMOTEROL [Suspect]
     Active Substance: BUDESONIDE\FORMOTEROL
     Indication: RHINITIS ALLERGIC
     Dosage: UNK
  5. FLUTICASONE. [Suspect]
     Active Substance: FLUTICASONE
     Indication: ASTHMA

REACTIONS (1)
  - Dermatitis contact [Unknown]
